FAERS Safety Report 14360414 (Version 3)
Quarter: 2019Q2

REPORT INFORMATION
  Report Type: Spontaneous
  Country: IT (occurrence: IT)
  Receive Date: 20180106
  Receipt Date: 20190531
  Transmission Date: 20190711
  Serious: Yes (Hospitalization)
  Sender: FDA-Public Use
  Company Number: IT-SUN PHARMACEUTICAL INDUSTRIES LTD-2017RR-159191

PATIENT
  Age: 45 Year
  Sex: Male

DRUGS (8)
  1. DUROGESIC [Interacting]
     Active Substance: FENTANYL
     Indication: NEURALGIA
     Dosage: CYCLICAL
     Route: 062
     Dates: start: 20170601, end: 20171130
  2. AMITRIPTYLINE [Interacting]
     Active Substance: AMITRIPTYLINE
     Indication: PRODUCT USED FOR UNKNOWN INDICATION
     Dosage: 10 MG, DAILY
     Route: 048
     Dates: start: 20170601, end: 20171130
  3. DULOXETINE. [Interacting]
     Active Substance: DULOXETINE
     Dosage: 60 MILLIGRAM
     Route: 048
     Dates: start: 20170601, end: 20171130
  4. RIVOTRIL [Interacting]
     Active Substance: CLONAZEPAM
     Indication: PRODUCT USED FOR UNKNOWN INDICATION
     Dosage: UNK
     Route: 048
  5. ENTERELLE [Concomitant]
     Indication: PRODUCT USED FOR UNKNOWN INDICATION
     Dosage: 18 GTT, DAILY
     Route: 048
     Dates: start: 20170601, end: 20171130
  6. DULOXETINE. [Interacting]
     Active Substance: DULOXETINE
     Indication: PRODUCT USED FOR UNKNOWN INDICATION
     Route: 065
  7. GABAPENTIN. [Suspect]
     Active Substance: GABAPENTIN
     Indication: NEURALGIA
     Dosage: 1200 MG, DAILY
     Route: 048
     Dates: start: 20170601, end: 20171130
  8. CANNABIS INFLORESCENCES [Interacting]
     Active Substance: CANNABIS SATIVA SUBSP. INDICA TOP
     Indication: NEURALGIA
     Dosage: UNK
     Route: 065
     Dates: start: 20170601, end: 20171130

REACTIONS (7)
  - Confusional state [Recovering/Resolving]
  - Tremor [Recovering/Resolving]
  - Memory impairment [Recovering/Resolving]
  - Sinus tachycardia [Recovering/Resolving]
  - Drug interaction [Recovering/Resolving]
  - Syncope [Recovering/Resolving]
  - Urinary retention [Recovering/Resolving]

NARRATIVE: CASE EVENT DATE: 20170901
